FAERS Safety Report 24013848 (Version 1)
Quarter: 2024Q2

REPORT INFORMATION
  Report Type: Report from Study
  Country: US (occurrence: US)
  Receive Date: 20240626
  Receipt Date: 20240626
  Transmission Date: 20240715
  Serious: Yes (Other)
  Sender: FDA-Public Use
  Company Number: US-JNJFOC-20230332844

PATIENT
  Age: 53 Year
  Sex: Female

DRUGS (7)
  1. REMICADE [Suspect]
     Active Substance: INFLIXIMAB
     Indication: Psoriasis
     Route: 041
     Dates: start: 20081105, end: 20081218
  2. REMICADE [Suspect]
     Active Substance: INFLIXIMAB
     Route: 041
     Dates: start: 20080701, end: 20080701
  3. REMICADE [Suspect]
     Active Substance: INFLIXIMAB
     Route: 041
     Dates: start: 20090115, end: 20090210
  4. REMICADE [Suspect]
     Active Substance: INFLIXIMAB
     Route: 041
     Dates: start: 20090311, end: 20090311
  5. REMICADE [Suspect]
     Active Substance: INFLIXIMAB
     Route: 041
     Dates: start: 20090408, end: 20091020
  6. REMICADE [Suspect]
     Active Substance: INFLIXIMAB
     Route: 041
     Dates: start: 20101103, end: 20110126
  7. STELARA [Suspect]
     Active Substance: USTEKINUMAB
     Indication: Psoriasis
     Route: 058
     Dates: start: 20091120, end: 20100922

REACTIONS (3)
  - Deep vein thrombosis [Unknown]
  - Rhinitis [Unknown]
  - Thrombophlebitis [Unknown]

NARRATIVE: CASE EVENT DATE: 20090120
